FAERS Safety Report 6901776-1 (Version None)
Quarter: 2010Q3

REPORT INFORMATION
  Report Type: 
  Country: None (occurrence: None)
  Receive Date: 20100802
  Receipt Date: 20100802
  Transmission Date: 20110219
  Serious: No
  Sender: FDA-Public Use
  Company Number: None

PATIENT
  Weight: 98.8842 kg

DRUGS (1)
  1. HYDRALAZINE HCL [Suspect]
     Indication: HYPERTENSION
     Dosage: 25 MG 3X DAILY PO
     Route: 048
     Dates: start: 20100511, end: 20100703

REACTIONS (5)
  - DRUG INEFFECTIVE [None]
  - MICTURITION DISORDER [None]
  - OEDEMA PERIPHERAL [None]
  - PRODUCT LABEL ISSUE [None]
  - WEIGHT INCREASED [None]
